FAERS Safety Report 6593856-8 (Version None)
Quarter: 2010Q1

REPORT INFORMATION
  Report Type: 
  Country: None (occurrence: None)
  Receive Date: 20100222
  Receipt Date: 20100212
  Transmission Date: 20100710
  Serious: Yes (Other)
  Sender: FDA-Public Use
  Company Number: US-JNJFOC-20100206611

PATIENT
  Age: 98 Year
  Sex: Female

DRUGS (6)
  1. RISPERDAL [Suspect]
     Indication: PARANOIA
     Route: 048
  2. RISPERDAL [Suspect]
     Route: 048
  3. RISPERDAL [Suspect]
     Route: 048
  4. RISPERDAL [Suspect]
     Indication: DEMENTIA
     Route: 048
  5. RISPERDAL [Suspect]
     Route: 048
  6. RISPERDAL [Suspect]
     Route: 048

REACTIONS (6)
  - CEREBROVASCULAR ACCIDENT [None]
  - DRUG DISPENSING ERROR [None]
  - INCORRECT DOSE ADMINISTERED [None]
  - NERVOUS SYSTEM DISORDER [None]
  - PRODUCT PACKAGING ISSUE [None]
  - TRANSIENT ISCHAEMIC ATTACK [None]
